FAERS Safety Report 4765603-3 (Version None)
Quarter: 2005Q3

REPORT INFORMATION
  Report Type: 
  Country: None (occurrence: None)
  Receive Date: 20050908
  Receipt Date: 20050908
  Transmission Date: 20060218
  Serious: Yes (Other)
  Sender: FDA-Public Use
  Company Number: None

PATIENT
  Age: 66 Year
  Sex: Male

DRUGS (5)
  1. TERAZOSIN CAPS 5MG [Suspect]
     Indication: BENIGN PROSTATIC HYPERPLASIA
     Dosage: ONE DAILY
     Dates: start: 20050823
  2. PROSCAR [Concomitant]
  3. GLIPIZIDE [Concomitant]
  4. LISINOPRIL [Concomitant]
  5. LIPITOR [Concomitant]

REACTIONS (3)
  - DRUG EFFECT DECREASED [None]
  - DYSURIA [None]
  - URINE FLOW DECREASED [None]
